FAERS Safety Report 8775071 (Version 2)
Quarter: 2012Q4

REPORT INFORMATION
  Report Type: 
  Country: PL (occurrence: PL)
  Receive Date: 20120910
  Receipt Date: 20121009
  Transmission Date: 20130627
  Serious: Yes (Hospitalization, Other)
  Sender: FDA-Public Use
  Company Number: PL-BIOGENIDEC-2012BI020782

PATIENT
  Age: 34 Year
  Sex: Female

DRUGS (2)
  1. TYSABRI [Suspect]
     Indication: MULTIPLE SCLEROSIS
     Route: 042
     Dates: start: 201010, end: 201201
  2. MICROGYNON [Concomitant]
     Dates: start: 2000

REACTIONS (2)
  - Brain abscess [Not Recovered/Not Resolved]
  - Deep vein thrombosis [Unknown]
